FAERS Safety Report 26149046 (Version 1)
Quarter: 2025Q4

REPORT INFORMATION
  Report Type: Spontaneous
  Country: US (occurrence: US)
  Receive Date: 20251212
  Receipt Date: 20251212
  Transmission Date: 20260118
  Serious: Yes (Hospitalization)
  Sender: NOVARTIS
  Company Number: US-002147023-NVSC2025US189645

PATIENT
  Sex: Female

DRUGS (1)
  1. SCEMBLIX [Suspect]
     Active Substance: ASCIMINIB HYDROCHLORIDE
     Indication: Neoplasm malignant
     Dosage: 40 MG, QD (SCREMBLIX TAB 40MG 30 DAY SUPPLY)
     Route: 048
     Dates: start: 20251205

REACTIONS (1)
  - Headache [Recovering/Resolving]
